FAERS Safety Report 5636510-9 (Version None)
Quarter: 2008Q1

REPORT INFORMATION
  Report Type: 
  Country: None (occurrence: None)
  Receive Date: 20080219
  Receipt Date: 20080219
  Transmission Date: 20080703
  Serious: Yes (Other)
  Sender: FDA-Public Use
  Company Number: None

PATIENT
  Age: 65 Year
  Sex: Male
  Weight: 59.8748 kg

DRUGS (1)
  1. ITRACONAZOLE [Suspect]
     Indication: CHRONIC PULMONARY HISTOPLASMOSIS
     Dosage: 100 MG. 1 CAP 2X A DAY PO
     Route: 048
     Dates: start: 20080203, end: 20080203

REACTIONS (7)
  - ARTHRALGIA [None]
  - BURNING SENSATION [None]
  - CHILLS [None]
  - CONDITION AGGRAVATED [None]
  - ECONOMIC PROBLEM [None]
  - PHARMACEUTICAL PRODUCT COMPLAINT [None]
  - PRURITUS [None]
